FAERS Safety Report 25315125 (Version 2)
Quarter: 2025Q4

REPORT INFORMATION
  Report Type: Spontaneous
  Country: US (occurrence: US)
  Receive Date: 20250514
  Receipt Date: 20251123
  Transmission Date: 20260117
  Serious: No
  Sender: SANOFI AVENTIS
  Company Number: US-SA-2025SA136919

PATIENT
  Age: 68 Year
  Sex: Female

DRUGS (7)
  1. DUPIXENT [Suspect]
     Active Substance: DUPILUMAB
     Indication: Neurodermatitis
     Dosage: 300 MG, QOW
     Route: 058
     Dates: start: 201911
  2. VITAMIN D [Concomitant]
     Active Substance: VITAMIN D NOS
  3. ASPIRIN [Concomitant]
     Active Substance: ASPIRIN
  4. MELOXICAM [Concomitant]
     Active Substance: MELOXICAM
  5. TYLENOL [Concomitant]
     Active Substance: ACETAMINOPHEN
  6. LIPITOR [Concomitant]
     Active Substance: ATORVASTATIN CALCIUM
  7. LEVOTHYROXINE SODIUM [Concomitant]
     Active Substance: LEVOTHYROXINE SODIUM

REACTIONS (6)
  - Pruritus [Unknown]
  - Impaired healing [Unknown]
  - Tooth disorder [Unknown]
  - Rash [Unknown]
  - Neurodermatitis [Unknown]
  - Hip arthroplasty [Unknown]

NARRATIVE: CASE EVENT DATE: 20250401
